FAERS Safety Report 14446410 (Version 2)
Quarter: 2018Q2

REPORT INFORMATION
  Report Type: Spontaneous
  Country: US (occurrence: US)
  Receive Date: 20180126
  Receipt Date: 20180620
  Transmission Date: 20180711
  Serious: Yes (Hospitalization, Other)
  Sender: FDA-Public Use
  Company Number: US-009507513-1801USA008840

PATIENT
  Sex: Female
  Weight: 58.96 kg

DRUGS (1)
  1. NUVARING [Suspect]
     Active Substance: ETHINYL ESTRADIOL\ETONOGESTREL
     Indication: CONTRACEPTION
     Dosage: 1 DF, EVERY 30 DAYS
     Route: 067
     Dates: start: 20130430, end: 20140217

REACTIONS (6)
  - Tricuspid valve incompetence [Unknown]
  - Pulmonary embolism [Recovering/Resolving]
  - Pulmonary valve incompetence [Unknown]
  - Incorrect drug administration duration [Recovered/Resolved]
  - Mitral valve incompetence [Unknown]
  - Deep vein thrombosis [Recovering/Resolving]

NARRATIVE: CASE EVENT DATE: 20130430
